FAERS Safety Report 13054171 (Version 1)
Quarter: 2016Q4

REPORT INFORMATION
  Report Type: Spontaneous
  Country: DE (occurrence: DE)
  Receive Date: 20161222
  Receipt Date: 20161222
  Transmission Date: 20170207
  Serious: Yes (Hospitalization, Other)
  Sender: FDA-Public Use
  Company Number: DE-009507513-1612DEU001264

PATIENT
  Age: 74 Year
  Sex: Female
  Weight: 87 kg

DRUGS (8)
  1. CANDESARTAN ZENTIVA COMP [Concomitant]
     Indication: HYPERTENSION
     Dosage: 24/18.75 MG IN THE MORNING
  2. VOLTAREN [Suspect]
     Active Substance: DICLOFENAC SODIUM
     Indication: ARTHRALGIA
     Dosage: UNK, ONCE
     Route: 048
     Dates: start: 20161004, end: 20161004
  3. CONCOR [Concomitant]
     Active Substance: BISOPROLOL FUMARATE
     Indication: HYPERTENSION
     Dosage: 5 MG, BID
  4. ASS 100 [Concomitant]
     Active Substance: ASPIRIN
     Indication: ANGIOSCLEROSIS
     Dosage: 100 MG, DAILY
  5. EZETROL [Suspect]
     Active Substance: EZETIMIBE
     Indication: HYPERLIPIDAEMIA
     Dosage: 15 MG (ONE AND A HALF TABLETS) ONCE A DAY IN THE EVENING
     Route: 048
     Dates: start: 20160526, end: 20161006
  6. ALLOPURINOL. [Concomitant]
     Active Substance: ALLOPURINOL
     Dosage: UNK
  7. CANDESARTAN [Concomitant]
     Active Substance: CANDESARTAN
     Indication: HYPERTENSION
     Dosage: 8 MG, IN THE EVENING
  8. EZETROL [Suspect]
     Active Substance: EZETIMIBE
     Indication: CAROTID ARTERY STENOSIS

REACTIONS (5)
  - Hypertension [Recovered/Resolved]
  - Thrombocytopenia [Recovered/Resolved]
  - Chills [Unknown]
  - Tachycardia [Unknown]
  - Wrong technique in product usage process [Unknown]

NARRATIVE: CASE EVENT DATE: 20160526
